FAERS Safety Report 8489971-4 (Version None)
Quarter: 2012Q3

REPORT INFORMATION
  Report Type: 
  Country: None (occurrence: None)
  Receive Date: 20120705
  Receipt Date: 20120627
  Transmission Date: 20120928
  Serious: Yes (Hospitalization)
  Sender: FDA-Public Use
  Company Number: US-B.I. PHARMACEUTICALS,INC./RIDGEFIELD-2012-BP-04764BP

PATIENT
  Sex: Female
  Weight: 79.38 kg

DRUGS (9)
  1. TRADJENTA [Suspect]
     Indication: DIABETES MELLITUS
     Dosage: 5 MG
     Route: 048
     Dates: start: 20110602, end: 20120301
  2. LOTREL [Concomitant]
  3. HYDROCHLOROTHIAZIDE [Concomitant]
  4. SYNTHROID [Concomitant]
  5. CRESTOR [Concomitant]
  6. AMBIEN [Concomitant]
  7. ATENOLOL [Concomitant]
  8. EFFEXOR [Concomitant]
  9. AMARYL [Concomitant]

REACTIONS (1)
  - GASTROENTERITIS [None]
